FAERS Safety Report 13648494 (Version 2)
Quarter: 2017Q4

REPORT INFORMATION
  Report Type: Spontaneous
  Country: US (occurrence: US)
  Receive Date: 20170613
  Receipt Date: 20171102
  Transmission Date: 20180320
  Serious: Yes (Hospitalization)
  Sender: FDA-Public Use
  Company Number: US-PFIZER INC-2017256947

PATIENT
  Age: 67 Year
  Sex: Female

DRUGS (21)
  1. HYDROCODONE [Concomitant]
     Active Substance: HYDROCODONE
     Indication: PAIN
     Dosage: UNK (10/325 MG EVERY 4 TO 6 HRS)
  2. ALLEGRA [Concomitant]
     Active Substance: FEXOFENADINE HYDROCHLORIDE
     Dosage: 180 MG, AS NEEDED
  3. XELJANZ [Suspect]
     Active Substance: TOFACITINIB CITRATE
     Indication: ARTHRALGIA
  4. METOPROLOL. [Concomitant]
     Active Substance: METOPROLOL
     Dosage: 25 MG, 2X/DAY
  5. XELJANZ [Suspect]
     Active Substance: TOFACITINIB CITRATE
     Indication: RHEUMATOID ARTHRITIS
     Dosage: 5 MG, 2X/DAY
     Route: 048
     Dates: start: 20170310, end: 20170517
  6. CELEBREX [Suspect]
     Active Substance: CELECOXIB
     Indication: RHEUMATOID ARTHRITIS
     Dosage: 200 MG, UNK
     Dates: end: 20170516
  7. CYMBALTA [Suspect]
     Active Substance: DULOXETINE HYDROCHLORIDE
     Indication: PAIN
     Dosage: 600 MG, 1X/DAY
     Dates: start: 2016
  8. EVOXAC [Suspect]
     Active Substance: CEVIMELINE HYDROCHLORIDE
     Indication: RHEUMATOID ARTHRITIS
     Dosage: UNK, 3X/DAY
  9. LYRICA [Concomitant]
     Active Substance: PREGABALIN
     Indication: PAIN
     Dosage: 150 MG, 2X/DAY
  10. ZANTAC [Concomitant]
     Active Substance: RANITIDINE HYDROCHLORIDE
     Dosage: 300 MG, DAILY
  11. AVALIDE [Suspect]
     Active Substance: HYDROCHLOROTHIAZIDE\IRBESARTAN
     Indication: CARDIOVASCULAR DISORDER
     Dosage: UNK, 1X/DAY
     Dates: start: 20091007
  12. FOLIC ACID. [Concomitant]
     Active Substance: FOLIC ACID
     Indication: RHEUMATOID ARTHRITIS
     Dosage: 1 MG, DAILY
  13. FLEXERIL [Concomitant]
     Active Substance: CYCLOBENZAPRINE HYDROCHLORIDE
     Indication: PAIN
     Dosage: 10 MG, 3X/DAY
  14. METHOTREXATE. [Concomitant]
     Active Substance: METHOTREXATE
     Dosage: 2.5 MG, UNK (ONCE EVERY THURSDAY)
  15. PREDNISONE. [Concomitant]
     Active Substance: PREDNISONE
     Indication: RHEUMATOID ARTHRITIS
     Dosage: 8 MG, 1X/DAY (EVERY AM)
     Dates: start: 1986
  16. CALCIUM CARBONATE AND VITAMIN D [Concomitant]
     Active Substance: CALCIUM CARBONATE\VITAMIN D
     Indication: RHEUMATOID ARTHRITIS
     Dosage: 600 MG, DAILY
     Dates: start: 1978
  17. CELEBREX [Suspect]
     Active Substance: CELECOXIB
     Dosage: 200 MG, UNK
     Dates: start: 20170414
  18. EVOXAC [Suspect]
     Active Substance: CEVIMELINE HYDROCHLORIDE
     Indication: SJOGREN^S SYNDROME
  19. LIPITOR [Concomitant]
     Active Substance: ATORVASTATIN CALCIUM
     Indication: CARDIOVASCULAR DISORDER
     Dosage: 20 MG, 1X/DAY
  20. ECOTRIN [Concomitant]
     Active Substance: ASPIRIN
     Dosage: 81 MG, 2X/DAY
  21. PRILOSEC [Concomitant]
     Active Substance: OMEPRAZOLE MAGNESIUM
     Dosage: 40 MG, DAILY

REACTIONS (4)
  - Diarrhoea [Recovered/Resolved]
  - Dehydration [Recovered/Resolved]
  - Abdominal pain upper [Recovered/Resolved]
  - Renal disorder [Recovered/Resolved]

NARRATIVE: CASE EVENT DATE: 20170504
